FAERS Safety Report 9123850 (Version 1)
Quarter: 2013Q1

REPORT INFORMATION
  Report Type: Report from Study
  Country: US (occurrence: US)
  Receive Date: 20130116
  Receipt Date: 20130116
  Transmission Date: 20140127
  Serious: No
  Sender: FDA-Public Use
  Company Number: US-VERTEX PHARMACEUTICALS INC.-2013-000607

PATIENT
  Age: 56 Year
  Sex: Female

DRUGS (3)
  1. VX-950 (TELAPREVIR) [Suspect]
     Indication: HEPATITIS C
     Dosage: 375 MG, UNK
     Route: 048
     Dates: start: 20121218, end: 20130111
  2. RIBAPAK [Suspect]
     Indication: HEPATITIS C
     Dosage: 400/600MG
     Dates: start: 20110621
  3. PEGASYS [Suspect]
     Indication: HEPATITIS C
     Dosage: 180MCG/0.5ML
     Dates: start: 20110621

REACTIONS (2)
  - Rash [Not Recovered/Not Resolved]
  - Pruritus [Not Recovered/Not Resolved]
